FAERS Safety Report 8011736-8 (Version None)
Quarter: 2011Q4

REPORT INFORMATION
  Report Type: 
  Country: None (occurrence: None)
  Receive Date: 20111228
  Receipt Date: 20111222
  Transmission Date: 20120403
  Serious: No
  Sender: FDA-Public Use
  Company Number: US-TEVA-314956USA

PATIENT
  Sex: Male
  Weight: 95.794 kg

DRUGS (8)
  1. SINEMET [Concomitant]
  2. PAXIL [Concomitant]
  3. REQUIP [Concomitant]
  4. AZILECT [Suspect]
     Indication: PARKINSON'S DISEASE
     Dosage: 1 MILLIGRAM;
     Route: 048
     Dates: start: 20111220
  5. PROPRANOLOL [Concomitant]
  6. BENAZEPRIL HYDROCHLORIDE [Concomitant]
  7. FLOMAX [Concomitant]
  8. KLONOPIN [Concomitant]

REACTIONS (3)
  - TREMOR [None]
  - BLOOD PRESSURE INCREASED [None]
  - NERVOUSNESS [None]
